FAERS Safety Report 6568442-6 (Version None)
Quarter: 2010Q1

REPORT INFORMATION
  Report Type: 
  Country: None (occurrence: None)
  Receive Date: 20100203
  Receipt Date: 20100129
  Transmission Date: 20100710
  Serious: Yes (Other)
  Sender: FDA-Public Use
  Company Number: A0834852A

PATIENT
  Sex: Male

DRUGS (4)
  1. LAMICTAL [Suspect]
     Indication: DRUG USE FOR UNKNOWN INDICATION
     Dosage: 25MG AT NIGHT
     Route: 065
     Dates: start: 20091015, end: 20091217
  2. SYNTHROID [Concomitant]
     Indication: HYPOTHYROIDISM
     Dosage: .1U PER DAY
     Route: 048
     Dates: start: 20080805
  3. LITHIUM [Concomitant]
     Dosage: 1200MG PER DAY
     Route: 048
     Dates: start: 20090130
  4. TRAZODONE [Concomitant]
     Dosage: 50MG AT NIGHT
     Route: 048
     Dates: start: 20081205

REACTIONS (2)
  - PSORIASIS [None]
  - SCAB [None]
